FAERS Safety Report 24054341 (Version 1)
Quarter: 2024Q3

REPORT INFORMATION
  Report Type: Spontaneous
  Country: CA (occurrence: CA)
  Receive Date: 20240705
  Receipt Date: 20240705
  Transmission Date: 20241017
  Serious: Yes (Hospitalization)
  Sender: ACCORD
  Company Number: None

PATIENT
  Age: 16 Year
  Sex: Male
  Weight: 75 kg

DRUGS (8)
  1. METHOTREXATE [Suspect]
     Active Substance: METHOTREXATE
     Indication: B-cell type acute leukaemia
     Dosage: ONCE
     Route: 042
  2. CHOLECALCIFEROL [Concomitant]
     Active Substance: CHOLECALCIFEROL
  3. ENOXAPARIN [Concomitant]
     Active Substance: ENOXAPARIN
  4. MERCAPTOPURINE [Concomitant]
     Active Substance: MERCAPTOPURINE
  5. NABILONE [Concomitant]
     Active Substance: NABILONE
  6. ONDANSETRON [Concomitant]
     Active Substance: ONDANSETRON
  7. SODIUM BICARBONATE [Concomitant]
     Active Substance: SODIUM BICARBONATE
  8. SULFAMETHOXAZOLE\TRIMETHOPRIM [Concomitant]
     Active Substance: SULFAMETHOXAZOLE\TRIMETHOPRIM
     Route: 065

REACTIONS (4)
  - Oral pain [Recovered/Resolved]
  - Epistaxis [Recovered/Resolved]
  - Proctalgia [Recovered/Resolved]
  - Hypophagia [Recovered/Resolved]
